FAERS Safety Report 10043200 (Version 1)
Quarter: 2014Q1

REPORT INFORMATION
  Report Type: Spontaneous
  Country: FR (occurrence: FR)
  Receive Date: 20140328
  Receipt Date: 20140328
  Transmission Date: 20141002
  Serious: Yes (Hospitalization)
  Sender: FDA-Public Use
  Company Number: FR-ROCHE-1372134

PATIENT
  Age: 52 Year
  Sex: Male

DRUGS (5)
  1. MABTHERA [Suspect]
     Indication: LYMPHOCYTIC LYMPHOMA
     Route: 042
     Dates: start: 201306, end: 201310
  2. FLUDARA [Suspect]
     Indication: LYMPHOCYTIC LYMPHOMA
     Route: 048
     Dates: start: 201306, end: 201310
  3. ENDOXAN [Suspect]
     Indication: LYMPHOCYTIC LYMPHOMA
     Route: 048
     Dates: start: 201306, end: 201310
  4. BACTRIM [Concomitant]
     Route: 065
  5. ZELITREX [Concomitant]

REACTIONS (1)
  - Acute polyneuropathy [Recovering/Resolving]
